FAERS Safety Report 15167101 (Version 1)
Quarter: 2018Q3

REPORT INFORMATION
  Report Type: Spontaneous
  Country: BR (occurrence: BR)
  Receive Date: 20180719
  Receipt Date: 20180719
  Transmission Date: 20181010
  Serious: Yes (Hospitalization, Other)
  Sender: FDA-Public Use
  Company Number: BR-ELI_LILLY_AND_COMPANY-BR201807007544

PATIENT
  Sex: Female

DRUGS (1)
  1. HUMULIN N [Suspect]
     Active Substance: INSULIN HUMAN
     Indication: PRODUCT USED FOR UNKNOWN INDICATION
     Dosage: UNK, UNKNOWN
     Route: 065

REACTIONS (9)
  - Hepatic steatosis [Unknown]
  - Blood glucose increased [Unknown]
  - Cartilage injury [Unknown]
  - Tremor [Unknown]
  - Blood cholesterol abnormal [Unknown]
  - Drug dose omission [Unknown]
  - Arthralgia [Unknown]
  - Memory impairment [Unknown]
  - Depression [Unknown]

NARRATIVE: CASE EVENT DATE: 2018
